FAERS Safety Report 9882740 (Version 1)
Quarter: 2014Q1

REPORT INFORMATION
  Report Type: Spontaneous
  Country: HR (occurrence: HR)
  Receive Date: 20140207
  Receipt Date: 20140207
  Transmission Date: 20141002
  Serious: Yes (Other)
  Sender: FDA-Public Use
  Company Number: HR-PFIZER INC-2014033063

PATIENT
  Age: 42 Year
  Sex: Female

DRUGS (1)
  1. DALACIN C [Suspect]
     Indication: SINUSITIS
     Dosage: 300 MG, 3X/DAY
     Route: 048
     Dates: start: 20130916, end: 20130925

REACTIONS (8)
  - Clostridium test positive [Recovering/Resolving]
  - Diarrhoea [Recovering/Resolving]
  - Mucous stools [Recovering/Resolving]
  - Dysbacteriosis [Recovering/Resolving]
  - Urticaria [Recovered/Resolved]
  - Anxiety [Unknown]
  - Panic attack [Unknown]
  - Insomnia [Unknown]
